FAERS Safety Report 7991303-2 (Version None)
Quarter: 2011Q4

REPORT INFORMATION
  Report Type: 
  Country: None (occurrence: None)
  Receive Date: 20111219
  Receipt Date: 20111207
  Transmission Date: 20120403
  Serious: Yes (Hospitalization)
  Sender: FDA-Public Use
  Company Number: US-ELI_LILLY_AND_COMPANY-US201112002238

PATIENT
  Sex: Male
  Weight: 104.31 kg

DRUGS (1)
  1. HUMATROPE [Suspect]
     Indication: GROWTH HORMONE DEFICIENCY
     Dosage: 3.0 MG, QD
     Dates: start: 20090624

REACTIONS (2)
  - CEREBROVASCULAR ACCIDENT [None]
  - BLOOD GLUCOSE ABNORMAL [None]
